FAERS Safety Report 10489764 (Version 3)
Quarter: 2014Q4

REPORT INFORMATION
  Report Type: Spontaneous
  Country: US (occurrence: US)
  Receive Date: 20141002
  Receipt Date: 20141021
  Transmission Date: 20150528
  Serious: Yes (Other)
  Sender: FDA-Public Use
  Company Number: US-AMGEN-USASP2014066134

PATIENT
  Age: 71 Year
  Sex: Male
  Weight: 81.63 kg

DRUGS (10)
  1. MULTIVITAMIN                       /00097801/ [Concomitant]
     Active Substance: VITAMINS
     Dosage: UNK UNK, QD 1 CAP
     Route: 048
  2. RED YEAST RICE [Concomitant]
     Active Substance: DIETARY SUPPLEMENT
     Dosage: 600 MG, BID
     Route: 048
  3. XGEVA [Suspect]
     Active Substance: DENOSUMAB
     Indication: METASTASES TO BONE
     Dosage: 120 MG, Q4WK
     Route: 058
     Dates: start: 20130109
  4. STAXYN [Concomitant]
     Active Substance: VARDENAFIL HYDROCHLORIDE TRIHYDRATE
     Indication: ERECTILE DYSFUNCTION
     Dosage: 10 MG, UNK 1 TAB PRN
     Route: 060
  5. CIALIS [Concomitant]
     Active Substance: TADALAFIL
     Dosage: 5 MG, QD AS DIRECTED
     Route: 048
  6. CALCIUM [Concomitant]
     Active Substance: CALCIUM
     Dosage: 500 MG, QD(1,250 MG)TABLET 2 TAB DAILY
     Route: 048
  7. VITAMIN D3 [Concomitant]
     Active Substance: CHOLECALCIFEROL
     Indication: VITAMIN D DEFICIENCY
     Dosage: 2000 IU, QD
     Route: 048
  8. NEXIUM [Concomitant]
     Active Substance: ESOMEPRAZOLE MAGNESIUM
     Indication: GASTROOESOPHAGEAL REFLUX DISEASE
     Dosage: 40 MG, QD 1 CAP
     Route: 048
  9. FLAXSEED [Concomitant]
     Active Substance: FLAX SEED
     Dosage: 1000 MG, QD
     Route: 048
  10. GLIPIZDE [Concomitant]
     Indication: BLOOD GLUCOSE INCREASED
     Dosage: 5 MG, UNK
     Route: 048

REACTIONS (9)
  - Joint stiffness [Unknown]
  - Musculoskeletal disorder [Unknown]
  - Rash pruritic [Unknown]
  - Ankle fracture [Recovering/Resolving]
  - Rash [Not Recovered/Not Resolved]
  - Arthralgia [Unknown]
  - Drug eruption [Unknown]
  - Pain in extremity [Not Recovered/Not Resolved]
  - Tooth fracture [Unknown]

NARRATIVE: CASE EVENT DATE: 201303
